FAERS Safety Report 10557643 (Version 1)
Quarter: 2014Q4

REPORT INFORMATION
  Report Type: Spontaneous
  Country: CH (occurrence: CH)
  Receive Date: 20141031
  Receipt Date: 20141031
  Transmission Date: 20150529
  Serious: Yes (Hospitalization)
  Sender: FDA-Public Use
  Company Number: CH-SA-2014SA145891

PATIENT
  Age: 67 Year
  Sex: Male

DRUGS (7)
  1. HYGROTON [Concomitant]
     Active Substance: CHLORTHALIDONE
  2. ASPIRIN. [Suspect]
     Active Substance: ASPIRIN
     Route: 048
     Dates: end: 20100929
  3. BECOZYM [Concomitant]
     Active Substance: VITAMINS
  4. PLAVIX [Suspect]
     Active Substance: CLOPIDOGREL BISULFATE
     Route: 048
     Dates: end: 20140929
  5. BENERVA [Concomitant]
     Active Substance: THIAMINE
  6. PLAVIX [Suspect]
     Active Substance: CLOPIDOGREL BISULFATE
     Route: 065
     Dates: start: 20140930
  7. ATORVASTATIN [Concomitant]
     Active Substance: ATORVASTATIN

REACTIONS (4)
  - Anaemia [Unknown]
  - Melaena [Recovered/Resolved]
  - Syncope [Recovered/Resolved]
  - Gastric ulcer [Recovering/Resolving]

NARRATIVE: CASE EVENT DATE: 201409
